FAERS Safety Report 9905996 (Version 3)
Quarter: 2015Q3

REPORT INFORMATION
  Report Type: Spontaneous
  Country: US (occurrence: US)
  Receive Date: 20140218
  Receipt Date: 20150812
  Transmission Date: 20151125
  Serious: No
  Sender: FDA-Public Use
  Company Number: US-GILEAD-2012-0055225

PATIENT
  Age: 60 Year
  Sex: Female
  Weight: 99.77 kg

DRUGS (11)
  1. LETAIRIS [Suspect]
     Active Substance: AMBRISENTAN
     Indication: PULMONARY HYPERTENSION
     Dosage: 10 MG, UNK
     Route: 048
     Dates: start: 20111230, end: 20120517
  2. ASPIRIN. [Concomitant]
     Active Substance: ASPIRIN
  3. AZATHIOPRINE. [Concomitant]
     Active Substance: AZATHIOPRINE
  4. NORTRIPTYLINE [Concomitant]
     Active Substance: NORTRIPTYLINE
  5. LETAIRIS [Suspect]
     Active Substance: AMBRISENTAN
     Indication: AUTOIMMUNE DISORDER
  6. AMLODIPINE [Concomitant]
     Active Substance: AMLODIPINE BESYLATE
  7. TEARS RENEWED                      /00635701/ [Concomitant]
  8. OMEPRAZOLE. [Concomitant]
     Active Substance: OMEPRAZOLE
  9. PREDNISONE. [Concomitant]
     Active Substance: PREDNISONE
  10. BOSENTAN [Concomitant]
     Active Substance: BOSENTAN
  11. SILDENAFIL. [Concomitant]
     Active Substance: SILDENAFIL
     Indication: PULMONARY HYPERTENSION

REACTIONS (5)
  - Oxygen saturation decreased [Recovering/Resolving]
  - Activities of daily living impaired [Recovering/Resolving]
  - Nasopharyngitis [Recovering/Resolving]
  - Dyspnoea [Recovering/Resolving]
  - Unevaluable event [Recovering/Resolving]
